FAERS Safety Report 24438863 (Version 2)
Quarter: 2024Q4

REPORT INFORMATION
  Report Type: Report from Study
  Country: SE (occurrence: SE)
  Receive Date: 20241015
  Receipt Date: 20241111
  Transmission Date: 20250114
  Serious: Yes (Death, Other)
  Sender: ABBVIE
  Company Number: SE-ABBVIE-5963567

PATIENT
  Age: 73 Year
  Sex: Male

DRUGS (3)
  1. CARBIDOPA\LEVODOPA [Suspect]
     Active Substance: CARBIDOPA\LEVODOPA
     Indication: Parkinson^s disease
     Dosage: THERAPY DURATION: REMAINED AT 16 HOURS
     Route: 050
     Dates: start: 20171207
  2. CARBIDOPA\LEVODOPA [Suspect]
     Active Substance: CARBIDOPA\LEVODOPA
     Dosage: MORNING DOSE: 7.0 ML, CONTINUOUS DOSE: 2.5 ML/H, EXTRA DOSE: 1.0 ML
     Route: 050
  3. ACETAMINOPHEN [Concomitant]
     Active Substance: ACETAMINOPHEN
     Indication: Product used for unknown indication

REACTIONS (6)
  - General physical health deterioration [Fatal]
  - Neoplasm malignant [Unknown]
  - Parkinson^s disease [Fatal]
  - Enteral nutrition [Unknown]
  - Infection [Unknown]
  - Feeding disorder [Unknown]

NARRATIVE: CASE EVENT DATE: 20150101
